FAERS Safety Report 11330457 (Version 1)
Quarter: 2015Q3

REPORT INFORMATION
  Report Type: Spontaneous
  Country: US (occurrence: None)
  Receive Date: 20150731
  Receipt Date: 20150731
  Transmission Date: 20151125
  Serious: Yes (Death)
  Sender: FDA-Public Use
  Company Number: None

PATIENT
  Age: 44 Year
  Sex: Male

DRUGS (1)
  1. LUCENTIS [Suspect]
     Active Substance: RANIBIZUMAB
     Indication: DIABETIC RETINAL OEDEMA
     Dosage: INTRAVITREAL, Q1M
     Dates: start: 20150202, end: 20150706

REACTIONS (2)
  - Unresponsive to stimuli [None]
  - Myocardial infarction [None]

NARRATIVE: CASE EVENT DATE: 20150729
